FAERS Safety Report 8802884 (Version 3)
Quarter: 2013Q4

REPORT INFORMATION
  Report Type: Report from Study
  Country: JP (occurrence: JP)
  Receive Date: 20120924
  Receipt Date: 20131230
  Transmission Date: 20140711
  Serious: Yes (Life-Threatening, Hospitalization, Other)
  Sender: FDA-Public Use
  Company Number: JP-VERTEX PHARMACEUTICAL INC.-AE-2012-008758

PATIENT
  Age: 50 Year
  Sex: Male

DRUGS (39)
  1. VX-950 (TELAPREVIR) [Suspect]
     Indication: CHRONIC HEPATITIS C
     Dosage: 1500 MG, QD
     Route: 048
     Dates: start: 20120601, end: 20120605
  2. VX-950 (TELAPREVIR) [Suspect]
     Dosage: 1500 MG, QD
     Route: 048
     Dates: start: 20120703, end: 20120918
  3. VX-950 (TELAPREVIR) [Suspect]
     Dosage: 1000 MG, QD
     Route: 048
     Dates: start: 20120919, end: 20120925
  4. REBETOL [Suspect]
     Indication: CHRONIC HEPATITIS C
     Dosage: 600 MG, QD
     Route: 048
     Dates: start: 20120601, end: 20120605
  5. REBETOL [Suspect]
     Dosage: 600 MG, QD
     Route: 048
     Dates: start: 20120703, end: 20120828
  6. REBETOL [Suspect]
     Dosage: 400 MG, QD
     Route: 048
     Dates: start: 20120829, end: 20120904
  7. REBETOL [Suspect]
     Dosage: 200 MG, QD
     Route: 048
     Dates: start: 20120905, end: 20121022
  8. REBETOL [Suspect]
     Dosage: 400 MG, QD
     Route: 048
     Dates: start: 20121023, end: 20121029
  9. REBETOL [Suspect]
     Dosage: 600 MG, QD
     Route: 048
     Dates: start: 20121030, end: 20121112
  10. REBETOL [Suspect]
     Dosage: 400 MG, QD
     Route: 048
     Dates: start: 20121113
  11. PEGINTRON [Suspect]
     Indication: CHRONIC HEPATITIS C
     Dosage: 1.3 ?G/KG, QW
     Route: 058
     Dates: start: 20120601, end: 20120605
  12. PEGINTRON [Suspect]
     Dosage: 1.3 ?G/KG, QW
     Route: 058
     Dates: start: 20120703, end: 20120919
  13. PEGINTRON [Suspect]
     Dosage: 0.75 ?G/KG, QW
     Route: 058
     Dates: start: 20120927, end: 20121016
  14. PEGINTRON [Suspect]
     Dosage: 1.3 ?G/KG, QW
     Route: 058
     Dates: start: 20121023, end: 20130130
  15. URSO [Concomitant]
     Dosage: 300 MG, QD
     Route: 048
  16. SELBEX [Concomitant]
     Dosage: 1.5 G, QD
     Route: 048
  17. AMINOVACT [Concomitant]
     Dosage: 14.22 MG, QD
     Route: 048
  18. AMINOVACT [Concomitant]
     Dosage: 14.22 G, QD
     Route: 048
     Dates: end: 20120723
  19. AMINOVACT [Concomitant]
     Dosage: 12.45 G, QD
     Route: 048
     Dates: start: 20120724
  20. GLIMEPIRIDE [Concomitant]
     Dosage: 2 MG, QD
     Route: 048
  21. ALDACTONE A [Concomitant]
     Dosage: 25 MG, QD
     Route: 048
  22. LASIX [Concomitant]
     Dosage: 20 MG, QD
     Route: 048
  23. LASIX [Concomitant]
     Dosage: 20 MG, QD
     Route: 042
     Dates: start: 20120711, end: 20120711
  24. LASIX [Concomitant]
     Dosage: 20 MG, QD TEMPORARILY
     Route: 042
     Dates: start: 20120925, end: 20121009
  25. EXFORGE [Concomitant]
     Dosage: 1 DF, QD
     Route: 048
  26. OMEPRAL [Concomitant]
     Dosage: 10 MG, QD
     Route: 048
  27. XYZAL [Concomitant]
     Dosage: 5 MG, QD
     Route: 048
  28. LANTUS [Concomitant]
     Dosage: 24 UT, QD (IN MORNING)
     Route: 058
  29. NOVOLIN R [Concomitant]
     Dosage: 200-249 8 UT, QD; 250-299 12 UT; 300-399 16 UT; 400+ 20 UT
     Route: 058
  30. NEO-MINOPHAGEN C [Concomitant]
     Dosage: 40 ML, QD
     Route: 042
  31. PERIZELIN [Concomitant]
     Dosage: 30 MG, QD TEMPORARLLY
     Route: 048
     Dates: start: 20120903, end: 20120907
  32. BIOFERMIN [Concomitant]
     Dosage: 3 G, QD TEMPORARILY
     Route: 048
     Dates: start: 20120903, end: 20120907
  33. KLARICID [Concomitant]
     Dosage: 400 MG, QD TEMPORARILY
     Route: 048
     Dates: start: 20120903, end: 20120907
  34. NERIPROCT [Concomitant]
     Dosage: 7 DF, QD
     Route: 054
     Dates: start: 20120903
  35. MOHRUS [Concomitant]
     Dosage: UNK
     Route: 061
     Dates: start: 20120919
  36. ALBUMINAR [Concomitant]
     Dosage: 50 ML, QD TEMPORARILY
     Route: 041
     Dates: start: 20120925, end: 20121004
  37. METHYCOOL [Concomitant]
     Dosage: 1.5 MG, QD
     Route: 048
     Dates: start: 20121009
  38. MAGMITT [Concomitant]
     Dosage: 660 MG, QD
     Route: 048
     Dates: start: 20121023, end: 20121112
  39. CALONAL [Concomitant]
     Dosage: 2 T/DAY, AS NEEDED
     Route: 048
     Dates: start: 20120829

REACTIONS (2)
  - Anaemia [Not Recovered/Not Resolved]
  - Hepatic cancer [Recovered/Resolved]
